FAERS Safety Report 15290121 (Version 1)
Quarter: 2018Q3

REPORT INFORMATION
  Report Type: Spontaneous
  Country: FR (occurrence: FR)
  Receive Date: 20180817
  Receipt Date: 20180817
  Transmission Date: 20181010
  Serious: Yes (Hospitalization, Other)
  Sender: FDA-Public Use
  Company Number: FR-JNJFOC-20180815383

PATIENT
  Age: 54 Year
  Sex: Male
  Weight: 81 kg

DRUGS (4)
  1. METHOTREXATE. [Suspect]
     Active Substance: METHOTREXATE
     Indication: BURKITT^S LYMPHOMA
     Route: 042
     Dates: start: 20180622
  2. VINCRISTINE [Suspect]
     Active Substance: VINCRISTINE
     Indication: BURKITT^S LYMPHOMA
     Route: 042
     Dates: start: 20180622
  3. DOXORUBICIN HYDROCHLORIDE. [Suspect]
     Active Substance: DOXORUBICIN HYDROCHLORIDE
     Indication: BURKITT^S LYMPHOMA
     Route: 042
     Dates: start: 20180623
  4. CYCLOPHOSPHAMIDE. [Suspect]
     Active Substance: CYCLOPHOSPHAMIDE
     Indication: BURKITT^S LYMPHOMA
     Route: 042
     Dates: start: 20180622, end: 20180623

REACTIONS (6)
  - Acute kidney injury [Unknown]
  - Aplasia [Unknown]
  - Product use in unapproved indication [Unknown]
  - Mucosal inflammation [Unknown]
  - Off label use [Unknown]
  - Hyperbilirubinaemia [Unknown]
